FAERS Safety Report 7030029-9 (Version None)
Quarter: 2010Q4

REPORT INFORMATION
  Report Type: 
  Country: None (occurrence: None)
  Receive Date: 20101006
  Receipt Date: 20101004
  Transmission Date: 20110411
  Serious: Yes (Life-Threatening)
  Sender: FDA-Public Use
  Company Number: PHHY2010IT24003

PATIENT
  Sex: Female

DRUGS (2)
  1. VOLTFAST [Suspect]
     Dosage: 50 MG, PER DAY
     Route: 048
     Dates: start: 20100411, end: 20100411
  2. FOSAVANCE [Concomitant]
     Dosage: 70 MG PER DAY
     Route: 048

REACTIONS (3)
  - LOSS OF CONSCIOUSNESS [None]
  - SYNCOPE [None]
  - VERTIGO [None]
